FAERS Safety Report 11837327 (Version 5)
Quarter: 2016Q2

REPORT INFORMATION
  Report Type: Report from Study
  Country: US (occurrence: US)
  Receive Date: 20151215
  Receipt Date: 20160511
  Transmission Date: 20160815
  Serious: Yes (Other)
  Sender: FDA-Public Use
  Company Number: US-AMGEN-USASP2015121004

PATIENT
  Age: 50 Year
  Sex: Female
  Weight: 34.14 kg

DRUGS (3)
  1. PROLIA [Suspect]
     Active Substance: DENOSUMAB
     Indication: OSTEOPOROSIS POSTMENOPAUSAL
     Dosage: 60 MG, Q6MO
     Route: 058
     Dates: start: 20150720
  2. FERROUS SULFATE. [Concomitant]
     Active Substance: FERROUS SULFATE
     Indication: BLOOD IRON
     Dosage: 325 MG, UNK
     Route: 065
  3. VITAMIN D [Concomitant]
     Active Substance: CHOLECALCIFEROL
     Route: 065

REACTIONS (42)
  - Hair growth abnormal [Unknown]
  - Feeling hot [Unknown]
  - Erythema [Unknown]
  - Dyspnoea [Unknown]
  - Arthropathy [Unknown]
  - Contusion [Unknown]
  - Back pain [Unknown]
  - Micturition urgency [Unknown]
  - Alopecia [Unknown]
  - Fear [Unknown]
  - Abasia [Unknown]
  - Mobility decreased [Unknown]
  - Adverse drug reaction [Unknown]
  - Throat tightness [Unknown]
  - Salivary hypersecretion [Unknown]
  - Skin swelling [Unknown]
  - Multiple fractures [Unknown]
  - Skin exfoliation [Unknown]
  - Red blood cell count decreased [Unknown]
  - White blood cell count decreased [Unknown]
  - Pruritus [Unknown]
  - Bone disorder [Unknown]
  - Myalgia [Unknown]
  - Joint swelling [Unknown]
  - Skin disorder [Unknown]
  - Epistaxis [Unknown]
  - Blood calcium decreased [Unknown]
  - Muscular weakness [Unknown]
  - Alopecia [Unknown]
  - Feeling cold [Unknown]
  - Peripheral swelling [Unknown]
  - Blood iron decreased [Unknown]
  - Weight decreased [Unknown]
  - Dry skin [Unknown]
  - Chills [Unknown]
  - Gait disturbance [Unknown]
  - Temperature regulation disorder [Unknown]
  - Pollakiuria [Unknown]
  - Jaw disorder [Unknown]
  - Oxygen saturation decreased [Unknown]
  - Pyrexia [Unknown]
  - Pain in extremity [Unknown]

NARRATIVE: CASE EVENT DATE: 201508
